FAERS Safety Report 24908531 (Version 1)
Quarter: 2025Q1

REPORT INFORMATION
  Report Type: Spontaneous
  Country: CN (occurrence: CN)
  Receive Date: 20250131
  Receipt Date: 20250131
  Transmission Date: 20250409
  Serious: Yes (Hospitalization, Other)
  Sender: AUROBINDO
  Company Number: CN-AUROBINDO-AUR-APL-2025-004975

PATIENT
  Age: 53 Year
  Sex: Male
  Weight: 48.65 kg

DRUGS (12)
  1. EVOMELA [Suspect]
     Active Substance: MELPHALAN HYDROCHLORIDE
     Indication: Follicular lymphoma
     Dosage: 200 MILLIGRAM, ONCE A DAY
     Route: 041
     Dates: start: 20241222, end: 20241222
  2. ETOPOSIDE [Suspect]
     Active Substance: ETOPOSIDE
     Indication: Follicular lymphoma
     Dosage: 100 MILLIGRAM, ONCE A DAY
     Route: 041
     Dates: start: 20241218, end: 20241221
  3. ETOPOSIDE [Suspect]
     Active Substance: ETOPOSIDE
     Dosage: 100 MILLIGRAM, ONCE A DAY
     Route: 041
     Dates: start: 20241218, end: 20241221
  4. ETOPOSIDE [Suspect]
     Active Substance: ETOPOSIDE
     Dosage: 90 MILLIGRAM, ONCE A DAY
     Route: 041
     Dates: start: 20241218, end: 20241221
  5. THIOTEPA [Suspect]
     Active Substance: THIOTEPA
     Indication: Follicular lymphoma
     Dosage: 58 MILLIGRAM, ONCE A DAY
     Route: 041
     Dates: start: 20241217, end: 20241220
  6. CYTARABINE [Suspect]
     Active Substance: CYTARABINE
     Indication: Follicular lymphoma
     Dosage: 580 MILLIGRAM, ONCE A DAY
     Route: 041
     Dates: start: 20241218, end: 20241221
  7. SODIUM CHLORIDE [Suspect]
     Active Substance: SODIUM CHLORIDE
     Indication: Follicular lymphoma
     Dosage: 250 MILLILITER, ONCE A DAY (THIOTEPA INJECTION 58MG+0.9% SODIUM CHLORIDE)
     Route: 042
     Dates: start: 20241217, end: 20241220
  8. SODIUM CHLORIDE [Suspect]
     Active Substance: SODIUM CHLORIDE
     Dosage: 500 MILLILITER, ONCE A DAY (ETOPOSIDE INJECTION 100MG + 0.9% SODIUM CHLORIDE INJECTION)
     Route: 042
     Dates: start: 20241218, end: 20241221
  9. SODIUM CHLORIDE [Suspect]
     Active Substance: SODIUM CHLORIDE
     Dosage: 500 MILLILITER, ONCE A DAY (ETOPOSIDE INJECTION 100MG + 0.9% SODIUM CHLORIDE INJECTION)
     Route: 042
     Dates: start: 20241218, end: 20241221
  10. SODIUM CHLORIDE [Suspect]
     Active Substance: SODIUM CHLORIDE
     Dosage: 500 MILLILITER, ONCE A DAY (ETOPOSIDE INJECTION 90MG + 0.9% SODIUM CHLORIDE)
     Route: 042
     Dates: start: 20241218, end: 20241221
  11. SODIUM CHLORIDE [Suspect]
     Active Substance: SODIUM CHLORIDE
     Dosage: 500 MILLILITER, ONCE A DAY (CYTARABINE FOR INJECTION (CYTOSAR) 580MG + 0.9% SODIUM CHLORIDE)
     Route: 042
     Dates: start: 20241218, end: 20241221
  12. SODIUM CHLORIDE [Suspect]
     Active Substance: SODIUM CHLORIDE
     Dosage: 444 MILLILITER, ONCE A DAY ((EVOMELA) 200MG + 0.9% SODIUM CHLORIDE INJECTION)
     Route: 042
     Dates: start: 20241222, end: 20241222

REACTIONS (1)
  - Myelosuppression [Recovering/Resolving]

NARRATIVE: CASE EVENT DATE: 20241231
